FAERS Safety Report 6382343-8 (Version None)
Quarter: 2009Q3

REPORT INFORMATION
  Report Type: 
  Country: None (occurrence: None)
  Receive Date: 20090928
  Receipt Date: 20090928
  Transmission Date: 20100115
  Serious: No
  Sender: FDA-Public Use
  Company Number: None

PATIENT
  Age: 41 Year
  Sex: Female
  Weight: 80.2867 kg

DRUGS (12)
  1. LAMOTRIGINE [Suspect]
     Indication: ANXIETY
     Dosage: 150MG DAILY PO
     Route: 048
     Dates: start: 20090701, end: 20090902
  2. LAMOTRIGINE [Suspect]
     Indication: DEPRESSION
     Dosage: 150MG DAILY PO
     Route: 048
     Dates: start: 20090701, end: 20090902
  3. ADVAIR DISKUS 100/50 [Concomitant]
  4. CARISOPRODOL [Concomitant]
  5. EFFEXOR [Concomitant]
  6. NEURONTIN [Concomitant]
  7. TOPAMAX [Concomitant]
  8. LEVOTHYROXINE SODIUM [Concomitant]
  9. TRAZODONE [Concomitant]
  10. METHADONE [Concomitant]
  11. ZANAFLEX [Concomitant]
  12. XOPENEX HFA [Concomitant]

REACTIONS (3)
  - PRODUCT SUBSTITUTION ISSUE [None]
  - PRURITUS [None]
  - RASH [None]
